FAERS Safety Report 20577261 (Version 1)
Quarter: 2022Q1

REPORT INFORMATION
  Report Type: Spontaneous
  Country: US (occurrence: None)
  Receive Date: 20220309
  Receipt Date: 20220309
  Transmission Date: 20220423
  Serious: No
  Sender: FDA-Public Use
  Company Number: None

PATIENT
  Sex: Female

DRUGS (1)
  1. STELARA [Suspect]
     Active Substance: USTEKINUMAB
     Dosage: OTHER FREQUENCY : EVRY 8 WEEKS;?
     Route: 058
     Dates: start: 20220119

REACTIONS (4)
  - Condition aggravated [None]
  - Mucosal haemorrhage [None]
  - Diarrhoea [None]
  - Pain [None]
